FAERS Safety Report 7917614-4 (Version None)
Quarter: 2011Q4

REPORT INFORMATION
  Report Type: 
  Country: None (occurrence: None)
  Receive Date: 20111114
  Receipt Date: 20111103
  Transmission Date: 20120403
  Serious: Yes (Other)
  Sender: FDA-Public Use
  Company Number: TPA2011A06567

PATIENT
  Age: 75 Year
  Sex: Male
  Weight: 122.0176 kg

DRUGS (1)
  1. ACTOS [Suspect]
     Indication: TYPE 2 DIABETES MELLITUS
     Dosage: 45 MG, 1 IN 1 D, ORAL
     Route: 048
     Dates: start: 20070501, end: 20110801

REACTIONS (3)
  - HAEMATURIA [None]
  - BLADDER NEOPLASM [None]
  - BLADDER DYSPLASIA [None]
